FAERS Safety Report 6636517-9 (Version None)
Quarter: 2010Q1

REPORT INFORMATION
  Report Type: 
  Country: None (occurrence: None)
  Receive Date: 20100310
  Receipt Date: 20100225
  Transmission Date: 20100710
  Serious: Yes (Hospitalization)
  Sender: FDA-Public Use
  Company Number: MPS1-1000304

PATIENT
  Age: 19 Year
  Sex: Male

DRUGS (1)
  1. ALDURAZYME [Suspect]
     Indication: MUCOPOLYSACCHARIDOSIS I

REACTIONS (4)
  - DIABETES MELLITUS [None]
  - DIABETIC NEPHROPATHY [None]
  - HAEMODIALYSIS [None]
  - RENAL FAILURE [None]
